FAERS Safety Report 7398908-0 (Version None)
Quarter: 2011Q2

REPORT INFORMATION
  Report Type: 
  Country: None (occurrence: None)
  Receive Date: 20110407
  Receipt Date: 20110331
  Transmission Date: 20111010
  Serious: Yes (Hospitalization, Other)
  Sender: FDA-Public Use
  Company Number: US-ABBOTT-11P-163-0716087-00

PATIENT
  Sex: Female
  Weight: 75.818 kg

DRUGS (6)
  1. PRILOSEC [Concomitant]
     Indication: PRODUCT USED FOR UNKNOWN INDICATION
  2. NIASPAN [Suspect]
     Indication: HIGH DENSITY LIPOPROTEIN DECREASED
     Dates: start: 20090901, end: 20110101
  3. NIASPAN [Suspect]
     Dates: start: 20110101
  4. SIMVASTATIN [Concomitant]
     Indication: PRODUCT USED FOR UNKNOWN INDICATION
  5. CYMBALTA [Concomitant]
     Indication: PRODUCT USED FOR UNKNOWN INDICATION
  6. ASPIRIN [Concomitant]
     Indication: PRODUCT USED FOR UNKNOWN INDICATION

REACTIONS (7)
  - FLUSHING [None]
  - ERYTHEMA [None]
  - ATRIAL FIBRILLATION [None]
  - DIVERTICULITIS [None]
  - PRURITUS [None]
  - COLONIC POLYP [None]
  - FEELING HOT [None]
